FAERS Safety Report 5853024-1 (Version None)
Quarter: 2008Q3

REPORT INFORMATION
  Report Type: 
  Country: None (occurrence: None)
  Receive Date: 20080814
  Receipt Date: 20080428
  Transmission Date: 20090109
  Serious: No
  Sender: FDA-Public Use
  Company Number: WAES 0804USA06214

PATIENT

DRUGS (2)
  1. ISENTRESS [Suspect]
     Indication: HIV INFECTION
  2. TRUVADA [Suspect]
     Dosage: DAILY

REACTIONS (4)
  - ANOREXIA [None]
  - DIARRHOEA [None]
  - FEELING ABNORMAL [None]
  - INSOMNIA [None]
